FAERS Safety Report 10385164 (Version 1)
Quarter: 2014Q3

REPORT INFORMATION
  Report Type: Spontaneous
  Country: US (occurrence: US)
  Receive Date: 20140814
  Receipt Date: 20140814
  Transmission Date: 20150326
  Serious: No
  Sender: FDA-Public Use
  Company Number: US-VIVUS-2014V1000227

PATIENT
  Age: 68 Year
  Sex: Female
  Weight: 80.36 kg

DRUGS (10)
  1. QSYMIA [Suspect]
     Active Substance: PHENTERMINE HYDROCHLORIDE\TOPIRAMATE
     Indication: WEIGHT DECREASED
     Route: 048
     Dates: start: 20140421
  2. LIPO-FLAVONOID [Concomitant]
  3. CELEBREX [Concomitant]
     Active Substance: CELECOXIB
  4. TRAMADOL [Concomitant]
     Active Substance: TRAMADOL
  5. QSYMIA [Suspect]
     Active Substance: PHENTERMINE HYDROCHLORIDE\TOPIRAMATE
     Indication: WEIGHT DECREASED
     Route: 048
     Dates: start: 201404, end: 201404
  6. HYOSCYAMINE [Concomitant]
     Active Substance: HYOSCYAMINE
  7. VITAMIN D [Concomitant]
     Active Substance: CHOLECALCIFEROL
  8. LAMICTAL [Concomitant]
     Active Substance: LAMOTRIGINE
  9. KLONOPIN [Concomitant]
     Active Substance: CLONAZEPAM
  10. SYNTHROID [Concomitant]
     Active Substance: LEVOTHYROXINE SODIUM

REACTIONS (4)
  - Fall [Recovered/Resolved]
  - Balance disorder [Recovered/Resolved]
  - Dysgeusia [Not Recovered/Not Resolved]
  - Skin abrasion [Recovered/Resolved]

NARRATIVE: CASE EVENT DATE: 201404
